FAERS Safety Report 14365087 (Version 1)
Quarter: 2018Q1

REPORT INFORMATION
  Report Type: Spontaneous
  Country: US (occurrence: US)
  Receive Date: 20180108
  Receipt Date: 20180108
  Transmission Date: 20180509
  Serious: No
  Sender: FDA-Public Use
  Company Number: US-ROCHE-1995353

PATIENT
  Age: 39 Year
  Sex: Female

DRUGS (5)
  1. WARFARIN [Suspect]
     Active Substance: WARFARIN
     Indication: SEGMENTED HYALINISING VASCULITIS
     Route: 065
  2. ALTEPLASE. [Suspect]
     Active Substance: ALTEPLASE
     Route: 042
     Dates: start: 199107
  3. ALTEPLASE. [Suspect]
     Active Substance: ALTEPLASE
     Indication: SEGMENTED HYALINISING VASCULITIS
     Route: 042
  4. HEPARIN [Suspect]
     Active Substance: HEPARIN SODIUM
     Indication: SEGMENTED HYALINISING VASCULITIS
     Route: 065
  5. ASPIRIN. [Suspect]
     Active Substance: ASPIRIN
     Indication: SEGMENTED HYALINISING VASCULITIS
     Route: 065

REACTIONS (1)
  - Ulcer haemorrhage [Recovered/Resolved]
